FAERS Safety Report 6700736-3 (Version None)
Quarter: 2010Q2

REPORT INFORMATION
  Report Type: 
  Country: None (occurrence: None)
  Receive Date: 20100426
  Receipt Date: 20100409
  Transmission Date: 20101027
  Serious: Yes (Other)
  Sender: FDA-Public Use
  Company Number: ACO_00710_2010

PATIENT
  Sex: Female

DRUGS (4)
  1. SIRDALUD            (SIRDALUD - TIZANIDINE HYDROCHLORIDE) (NOT SPECIFI [Suspect]
     Indication: DRUG USE FOR UNKNOWN INDICATION
     Dosage: DF
  2. ATURGYL /00814901/(ATURGY - FENOXAZOLINE HYDROCHLORIDE) [Suspect]
     Indication: DRUG USE FOR UNKNOWN INDICATION
     Dosage: DF
  3. GABAPENTIN [Concomitant]
  4. LYRICA [Concomitant]

REACTIONS (3)
  - CHOLELITHIASIS [None]
  - DYSPNOEA [None]
  - FEELING ABNORMAL [None]
